FAERS Safety Report 24628707 (Version 6)
Quarter: 2025Q2

REPORT INFORMATION
  Report Type: Report from Study
  Country: US (occurrence: US)
  Receive Date: 20241117
  Receipt Date: 20250519
  Transmission Date: 20250717
  Serious: Yes (Hospitalization, Other)
  Sender: ABBVIE
  Company Number: US-ABBVIE-6001621

PATIENT
  Age: 70 Year
  Sex: Female
  Weight: 58.966 kg

DRUGS (4)
  1. RINVOQ [Suspect]
     Active Substance: UPADACITINIB
     Indication: Dermatitis atopic
     Dosage: 15 MILLIGRAM
     Route: 048
     Dates: start: 2021, end: 202410
  2. RINVOQ [Suspect]
     Active Substance: UPADACITINIB
     Indication: Dermatitis atopic
     Route: 048
  3. RINVOQ [Suspect]
     Active Substance: UPADACITINIB
     Indication: Dermatitis atopic
     Dosage: 15 MILLIGRAM
     Route: 048
     Dates: start: 202410
  4. RINVOQ [Suspect]
     Active Substance: UPADACITINIB
     Indication: Dermatitis atopic
     Route: 048

REACTIONS (14)
  - Fall [Recovered/Resolved]
  - Balance disorder [Recovering/Resolving]
  - Concussion [Recovered/Resolved]
  - Impaired driving ability [Recovered/Resolved]
  - Cerebral haemorrhage [Recovered/Resolved]
  - Ulcer [Recovered/Resolved]
  - Rash [Unknown]
  - Rash macular [Unknown]
  - Therapy cessation [Not Recovered/Not Resolved]
  - Insomnia [Unknown]
  - Loss of consciousness [Recovered/Resolved]
  - Head injury [Recovered/Resolved]
  - Headache [Recovered/Resolved]
  - Blood glucose decreased [Recovered/Resolved]

NARRATIVE: CASE EVENT DATE: 20240101
